FAERS Safety Report 9046328 (Version 2)
Quarter: 2013Q3

REPORT INFORMATION
  Report Type: Spontaneous
  Country: US (occurrence: US)
  Receive Date: 20130201
  Receipt Date: 20130918
  Transmission Date: 20140515
  Serious: Yes (Death)
  Sender: FDA-Public Use
  Company Number: US-BAYER-2013-011362

PATIENT
  Age: 22 Year
  Sex: Female
  Weight: 104.31 kg

DRUGS (15)
  1. YASMIN [Suspect]
  2. EFFEXOR [Concomitant]
  3. FLEXERIL [Concomitant]
     Dosage: 10 MG, TID
  4. CELESTONE [Concomitant]
     Dosage: 9 MG, UNK
  5. COMBIVENT [Concomitant]
  6. URSODIOL [Concomitant]
     Dosage: 250 MG, 3 BID
  7. MOTRIN [Concomitant]
     Dosage: 600 MG, Q (EVERY) 6 [HOURS] [TIMES] 24 [HOURS] THEN 400 MG PRN (AS NEEDED)
     Route: 048
  8. ALBUTEROL [Concomitant]
  9. XOPENEX [Concomitant]
  10. LEVAQUIN [Concomitant]
     Dosage: 500, QD FOR 10 DAYS
  11. KENALOG [Concomitant]
     Dosage: 40 MG, UNK
     Route: 042
  12. MEDROL [Concomitant]
  13. CLARINEX [DESLORATADINE] [Concomitant]
     Dosage: 5 MG, QD
  14. IBUPROFEN [Concomitant]
  15. NAPROXEN [Concomitant]

REACTIONS (2)
  - Pulmonary embolism [Fatal]
  - Vena cava thrombosis [Fatal]
